FAERS Safety Report 9203532 (Version 1)
Quarter: 2013Q1

REPORT INFORMATION
  Report Type: Spontaneous
  Country: US (occurrence: None)
  Receive Date: 20130329
  Receipt Date: 20130329
  Transmission Date: 20140127
  Serious: No
  Sender: FDA-Public Use
  Company Number: None

PATIENT
  Sex: Female

DRUGS (1)
  1. BOTOX [Suspect]
     Dosage: 200 UNITS Q 3 MONTHS IM
     Route: 030
     Dates: start: 20120710, end: 20130327

REACTIONS (1)
  - Condition aggravated [None]
